FAERS Safety Report 12419839 (Version 1)
Quarter: 2016Q2

REPORT INFORMATION
  Report Type: Spontaneous
  Country: GB (occurrence: GB)
  Receive Date: 20160531
  Receipt Date: 20160531
  Transmission Date: 20160815
  Serious: Yes (Life-Threatening, Hospitalization, Other)
  Sender: FDA-Public Use
  Company Number: GB-GLAXOSMITHKLINE-GB2016077126

PATIENT
  Age: 49 Year
  Sex: Female
  Weight: 68.3 kg

DRUGS (5)
  1. VOLTAROL (DICLOFENAC DIETHYLAMINE) [Concomitant]
     Dosage: UNK
  2. CERAZETTE [Concomitant]
     Active Substance: DESOGESTREL
     Dosage: UNK
  3. LANSOPRAZOLE. [Concomitant]
     Active Substance: LANSOPRAZOLE
     Dosage: UNK
  4. PARACETAMOL [Concomitant]
     Active Substance: ACETAMINOPHEN
     Dosage: UNK
  5. RANITIDINE. [Suspect]
     Active Substance: RANITIDINE
     Indication: GASTRIC ULCER
     Dosage: 150 MG, BID
     Route: 048
     Dates: start: 20160509, end: 20160510

REACTIONS (1)
  - Anaphylactoid reaction [Recovered/Resolved with Sequelae]

NARRATIVE: CASE EVENT DATE: 20160510
